FAERS Safety Report 10043046 (Version 1)
Quarter: 2014Q1

REPORT INFORMATION
  Report Type: Spontaneous
  Country: DE (occurrence: DE)
  Receive Date: 20140328
  Receipt Date: 20140328
  Transmission Date: 20141002
  Serious: Yes (Life-Threatening)
  Sender: FDA-Public Use
  Company Number: DE-009507513-1403DEU012810

PATIENT
  Age: 13 Year
  Sex: Female

DRUGS (3)
  1. TEMOZOLOMIDE [Suspect]
     Indication: GLIOMA
     Dosage: 75 MG/M2 (N=5), QD
     Route: 048
  2. TEMOZOLOMIDE [Suspect]
     Dosage: 60 MG/M2/ (N=1),QD
     Route: 048
  3. TOPOTECAN [Concomitant]
     Dosage: UNK

REACTIONS (2)
  - Haematotoxicity [Unknown]
  - Haematotoxicity [Unknown]
